FAERS Safety Report 20883390 (Version 1)
Quarter: 2022Q2

REPORT INFORMATION
  Report Type: Spontaneous
  Country: US (occurrence: None)
  Receive Date: 20220526
  Receipt Date: 20220526
  Transmission Date: 20220721
  Serious: Yes (Hospitalization)
  Sender: FDA-Public Use
  Company Number: None

PATIENT
  Age: 36 Year
  Sex: Female
  Weight: 67.5 kg

DRUGS (5)
  1. LEVOFLOXACIN [Suspect]
     Active Substance: LEVOFLOXACIN
     Indication: Prophylaxis
     Dosage: OTHER QUANTITY : 1 TABLET(S);?FREQUENCY : DAILY;?
     Route: 048
     Dates: start: 20211014, end: 20211016
  2. LORAZEPAM [Concomitant]
  3. PROBIOTIC [Concomitant]
  4. MULTI VITAMIN FOR WOMEN [Concomitant]
  5. BILL BERRY LUTEIN [Concomitant]

REACTIONS (15)
  - Palpitations [None]
  - Insomnia [None]
  - Functional gastrointestinal disorder [None]
  - Hypophagia [None]
  - Weight decreased [None]
  - Neuropathy peripheral [None]
  - Pain in jaw [None]
  - Dry eye [None]
  - Vision blurred [None]
  - Anxiety [None]
  - Heart rate increased [None]
  - Toxicity to various agents [None]
  - Premenstrual syndrome [None]
  - Quality of life decreased [None]
  - Product complaint [None]

NARRATIVE: CASE EVENT DATE: 20211016
